FAERS Safety Report 6434467-4 (Version None)
Quarter: 2009Q4

REPORT INFORMATION
  Report Type: 
  Country: None (occurrence: None)
  Receive Date: 20091110
  Receipt Date: 20091029
  Transmission Date: 20100525
  Serious: Yes (Death, Other)
  Sender: FDA-Public Use
  Company Number: US-PFIZER INC-2009274782

PATIENT
  Sex: Male
  Weight: 72.562 kg

DRUGS (1)
  1. SUTENT [Suspect]
     Indication: RENAL CANCER
     Dosage: 50 MG, 1X/DAY
     Dates: start: 20090904, end: 20090927

REACTIONS (7)
  - BLOOD PRESSURE INCREASED [None]
  - DEATH [None]
  - DYSPEPSIA [None]
  - FATIGUE [None]
  - HEPATITIS [None]
  - NAUSEA [None]
  - PRURITUS [None]
